FAERS Safety Report 24381427 (Version 1)
Quarter: 2024Q4

REPORT INFORMATION
  Report Type: Spontaneous
  Country: US (occurrence: US)
  Receive Date: 20241001
  Receipt Date: 20241001
  Transmission Date: 20250114
  Serious: No
  Sender: CHIESI
  Company Number: US-CHIESI-2024CHF03958

PATIENT
  Sex: Female
  Weight: 65 kg

DRUGS (6)
  1. FERRIPROX [Suspect]
     Active Substance: DEFERIPRONE
     Indication: Haemochromatosis
     Dosage: UNK UNK, BID
     Route: 048
     Dates: start: 20240327
  2. FERRIPROX [Suspect]
     Active Substance: DEFERIPRONE
     Indication: Red blood cell transfusion
  3. FERRIPROX [Suspect]
     Active Substance: DEFERIPRONE
     Indication: Sickle cell disease
  4. ELIQUIS [Concomitant]
     Active Substance: APIXABAN
     Indication: Product used for unknown indication
     Dosage: UNK
  5. FOLIC ACID [Concomitant]
     Active Substance: FOLIC ACID
     Indication: Product used for unknown indication
     Dosage: UNK
  6. HYDREA [Concomitant]
     Active Substance: HYDROXYUREA
     Indication: Product used for unknown indication
     Dosage: UNK

REACTIONS (2)
  - Chromaturia [Not Recovered/Not Resolved]
  - Off label use [Not Recovered/Not Resolved]

NARRATIVE: CASE EVENT DATE: 20240101
